FAERS Safety Report 6479991-3 (Version None)
Quarter: 2009Q4

REPORT INFORMATION
  Report Type: 
  Country: None (occurrence: None)
  Receive Date: 20091208
  Receipt Date: 20091123
  Transmission Date: 20100525
  Serious: Yes (Hospitalization)
  Sender: FDA-Public Use
  Company Number: US-SANOFI-AVENTIS-2009SA005312

PATIENT
  Age: 68 Year
  Sex: Male
  Weight: 101.4 kg

DRUGS (12)
  1. DOCETAXEL [Suspect]
     Indication: OESOPHAGEAL CARCINOMA
     Route: 041
     Dates: start: 20090831, end: 20090831
  2. DOCETAXEL [Suspect]
     Route: 041
     Dates: start: 20090728, end: 20090728
  3. ALL OTHER THERAPEUTIC PRODUCTS [Suspect]
     Indication: OESOPHAGEAL CARCINOMA
     Dates: start: 20090728, end: 20090831
  4. CISPLATIN [Suspect]
     Indication: OESOPHAGEAL CARCINOMA
     Dates: start: 20090728, end: 20090831
  5. ALL OTHER THERAPEUTIC PRODUCTS [Suspect]
     Dates: start: 20090831
  6. ALL OTHER THERAPEUTIC PRODUCTS [Concomitant]
  7. DOXYCYCLINE [Concomitant]
  8. PANTOPRAZOLE [Concomitant]
  9. ACETYLSALICYLIC ACID [Concomitant]
  10. FLUCONAZOLE [Concomitant]
  11. LISINOPRIL [Concomitant]
  12. LORAZEPAM [Concomitant]

REACTIONS (8)
  - ANAEMIA [None]
  - DECREASED APPETITE [None]
  - DEHYDRATION [None]
  - DYSPHAGIA [None]
  - FATIGUE [None]
  - HYPOMAGNESAEMIA [None]
  - HYPONATRAEMIA [None]
  - MUCOSAL INFLAMMATION [None]
